FAERS Safety Report 19458526 (Version 2)
Quarter: 2021Q3

REPORT INFORMATION
  Report Type: Report from Study
  Country: JP (occurrence: JP)
  Receive Date: 20210624
  Receipt Date: 20210921
  Transmission Date: 20211014
  Serious: Yes (Life-Threatening, Other)
  Sender: FDA-Public Use
  Company Number: JP-MYLANLABS-2021M1036862

PATIENT
  Age: 37 Year
  Sex: Female

DRUGS (5)
  1. PONATINIB [Interacting]
     Active Substance: PONATINIB
     Indication: PROPHYLACTIC CHEMOTHERAPY
     Route: 065
  2. VORICONAZOLE. [Interacting]
     Active Substance: VORICONAZOLE
     Indication: PRODUCT USED FOR UNKNOWN INDICATION
     Route: 065
  3. TACROLIMUS. [Suspect]
     Active Substance: TACROLIMUS
     Indication: PROPHYLAXIS AGAINST GRAFT VERSUS HOST DISEASE
     Route: 065
  4. ASPIRIN                            /00002701/ [Concomitant]
     Active Substance: ASPIRIN
     Indication: PROPHYLAXIS
     Route: 065
  5. PONATINIB [Interacting]
     Active Substance: PONATINIB
     Indication: PHILADELPHIA POSITIVE ACUTE LYMPHOCYTIC LEUKAEMIA

REACTIONS (4)
  - Hypertension [Unknown]
  - Drug interaction [Unknown]
  - Neutropenia [Unknown]
  - Amylase increased [Unknown]
